FAERS Safety Report 9326317 (Version 1)
Quarter: 2013Q2

REPORT INFORMATION
  Report Type: Spontaneous
  Country: US (occurrence: US)
  Receive Date: 20130604
  Receipt Date: 20130604
  Transmission Date: 20140414
  Serious: No
  Sender: FDA-Public Use
  Company Number: US-009507513-1305USA016538

PATIENT
  Age: 6 Year
  Sex: Female

DRUGS (3)
  1. NASONEX [Suspect]
     Indication: RHINITIS ALLERGIC
     Dosage: UNK
     Route: 055
  2. SINGULAIR [Concomitant]
     Dosage: UNK
     Route: 055
  3. CLARITIN [Concomitant]

REACTIONS (1)
  - Epistaxis [Unknown]
